FAERS Safety Report 10074561 (Version 1)
Quarter: 2014Q2

REPORT INFORMATION
  Report Type: Spontaneous
  Country: US (occurrence: US)
  Receive Date: 20140411
  Receipt Date: 20140411
  Transmission Date: 20141212
  Serious: No
  Sender: FDA-Public Use
  Company Number: US-SA-2014SA013805

PATIENT
  Age: 62 Year
  Sex: Female

DRUGS (6)
  1. ALLEGRA-D, 12 HR [Suspect]
     Indication: SINUS DISORDER
     Route: 048
     Dates: start: 20140130
  2. VITAMIN C [Concomitant]
     Route: 065
  3. CENOVIS WOMENS MULTIVITAMIN [Concomitant]
     Route: 065
  4. CALCIUM [Concomitant]
     Route: 065
  5. COLD-EEZE /PRI/ [Concomitant]
  6. NEO-SYNEPHRINE [Concomitant]
     Route: 065

REACTIONS (3)
  - Thinking abnormal [Not Recovered/Not Resolved]
  - Fatigue [Not Recovered/Not Resolved]
  - Insomnia [Not Recovered/Not Resolved]
